FAERS Safety Report 5945982-1 (Version None)
Quarter: 2008Q4

REPORT INFORMATION
  Report Type: 
  Country: None (occurrence: None)
  Receive Date: 20081107
  Receipt Date: 20081107
  Transmission Date: 20090506
  Serious: No
  Sender: FDA-Public Use
  Company Number: None

PATIENT
  Sex: Female
  Weight: 101.6057 kg

DRUGS (1)
  1. LEVOTHYROXINE SODIUM [Suspect]
     Indication: ANGIOEDEMA
     Dates: start: 20070101

REACTIONS (1)
  - ANGIOEDEMA [None]
